FAERS Safety Report 4358077-8 (Version None)
Quarter: 2004Q2

REPORT INFORMATION
  Report Type: 
  Country: None (occurrence: None)
  Receive Date: 20040510
  Receipt Date: 20030521
  Transmission Date: 20050107
  Serious: Yes (Hospitalization)
  Sender: FDA-Public Use
  Company Number: A03200301084

PATIENT
  Age: 65 Year
  Sex: Male

DRUGS (4)
  1. ELOXATIN [Suspect]
     Indication: COLORECTAL CANCER
     Dosage: 190 MG OTHER - INTRAVENOUS NOS
     Route: 042
     Dates: start: 20030401, end: 20030401
  2. ELOXATIN [Suspect]
     Indication: METASTASES TO LIVER
     Dosage: 190 MG OTHER - INTRAVENOUS NOS
     Route: 042
     Dates: start: 20030401, end: 20030401
  3. FLUOROUACIL [Concomitant]
  4. LEUCOVORIN CALCIUM [Concomitant]

REACTIONS (3)
  - ABDOMINAL HERNIA OBSTRUCTIVE [None]
  - GALLBLADDER PAIN [None]
  - INTESTINAL OBSTRUCTION [None]
